FAERS Safety Report 10041315 (Version 1)
Quarter: 2014Q1

REPORT INFORMATION
  Report Type: Spontaneous
  Country: US (occurrence: None)
  Receive Date: 20140326
  Receipt Date: 20140326
  Transmission Date: 20141002
  Serious: Yes (Hospitalization)
  Sender: FDA-Public Use
  Company Number: None

PATIENT
  Age: 54 Year
  Sex: Male
  Weight: 77.1 kg

DRUGS (1)
  1. ERBITUX (CETUXIMAB) [Suspect]
     Dosage: THIS EVENT TOOK PLACE APPROXIMATELY 4 WEEKS AFTER HIS LASTY CYCLE OF CETUXIMAB.

REACTIONS (1)
  - Infected dermal cyst [None]
